FAERS Safety Report 6511823-7 (Version None)
Quarter: 2009Q4

REPORT INFORMATION
  Report Type: 
  Country: None (occurrence: None)
  Receive Date: 20091222
  Receipt Date: 20091210
  Transmission Date: 20100525
  Serious: Yes (Other)
  Sender: FDA-Public Use
  Company Number: PHHY2009IT53107

PATIENT
  Age: 65 Year
  Sex: Female

DRUGS (3)
  1. ZOMETA [Suspect]
     Indication: METASTASES TO BONE
     Dosage: 2 INJECTIONS
     Route: 042
  2. FENTANYL-100 [Concomitant]
     Indication: GAIT DISTURBANCE
     Dosage: UPTO 300 MG THEN TAPERED OFF
  3. MORPHINE [Concomitant]
     Indication: GAIT DISTURBANCE
     Dosage: 10 MG X 2

REACTIONS (3)
  - EUPHORIC MOOD [None]
  - MENTAL DISORDER [None]
  - PAIN [None]
